FAERS Safety Report 25573309 (Version 2)
Quarter: 2025Q3

REPORT INFORMATION
  Report Type: Spontaneous
  Country: US (occurrence: US)
  Receive Date: 20250717
  Receipt Date: 20250915
  Transmission Date: 20251020
  Serious: Yes (Life-Threatening, Hospitalization, Other)
  Sender: REGENERON
  Company Number: US-REGENERON PHARMACEUTICALS, INC.-2025-113898

PATIENT
  Age: 60 Year
  Sex: Female

DRUGS (1)
  1. LIBTAYO [Suspect]
     Active Substance: CEMIPLIMAB-RWLC
     Indication: Cervix cancer metastatic

REACTIONS (5)
  - Septic shock [Unknown]
  - Immune-mediated lung disease [Unknown]
  - Wolff-Parkinson-White syndrome [Unknown]
  - Acute kidney injury [Unknown]
  - Chronic kidney disease [Unknown]
